FAERS Safety Report 21957441 (Version 1)
Quarter: 2023Q1

REPORT INFORMATION
  Report Type: Spontaneous
  Country: GB (occurrence: GB)
  Receive Date: 20230206
  Receipt Date: 20230206
  Transmission Date: 20230417
  Serious: Yes (Life-Threatening, Other)
  Sender: FDA-Public Use
  Company Number: None

PATIENT
  Age: 53 Year
  Sex: Female
  Weight: 79 kg

DRUGS (3)
  1. MONTELUKAST [Suspect]
     Active Substance: MONTELUKAST SODIUM
     Indication: Urticaria chronic
     Dosage: 10MG AT NIGHT; ;
     Route: 065
     Dates: end: 20230125
  2. CETIRIZINE [Concomitant]
     Active Substance: CETIRIZINE HYDROCHLORIDE
     Indication: Urticaria chronic
     Dosage: UNKNOWN
     Route: 065
     Dates: end: 20230125
  3. FAMOTIDINE [Concomitant]
     Active Substance: FAMOTIDINE
     Indication: Urticaria chronic
     Dosage: UNKNOWN
     Route: 065
     Dates: end: 20230125

REACTIONS (4)
  - Product prescribing error [Unknown]
  - Suicidal ideation [Unknown]
  - Depressed mood [Unknown]
  - Negative thoughts [Unknown]
